FAERS Safety Report 23766005 (Version 1)
Quarter: 2024Q2

REPORT INFORMATION
  Report Type: Spontaneous
  Country: US (occurrence: US)
  Receive Date: 20240421
  Receipt Date: 20240421
  Transmission Date: 20240716
  Serious: No
  Sender: FDA-Public Use
  Company Number: US-JNJFOC-20240409703

PATIENT
  Sex: Male

DRUGS (3)
  1. XARELTO [Suspect]
     Active Substance: RIVAROXABAN
     Indication: Atrial fibrillation
     Route: 048
  2. XARELTO [Suspect]
     Active Substance: RIVAROXABAN
     Indication: Cerebrovascular accident prophylaxis
  3. SOTALOL [Concomitant]
     Active Substance: SOTALOL
     Route: 065

REACTIONS (4)
  - Back pain [Unknown]
  - Fatigue [Unknown]
  - Muscular weakness [Unknown]
  - Product dose omission issue [Unknown]
